FAERS Safety Report 17293762 (Version 1)
Quarter: 2020Q1

REPORT INFORMATION
  Report Type: Spontaneous
  Country: US (occurrence: US)
  Receive Date: 20200121
  Receipt Date: 20200121
  Transmission Date: 20200409
  Serious: No
  Sender: FDA-Public Use
  Company Number: US-SA-2020SA013386

PATIENT
  Age: 30 Year
  Sex: Male

DRUGS (1)
  1. DUPIXENT [Suspect]
     Active Substance: DUPILUMAB
     Indication: DERMATITIS
     Dosage: 300 MG, QOW
     Route: 058
     Dates: start: 20191101

REACTIONS (3)
  - Eye pruritus [Not Recovered/Not Resolved]
  - Eyelid exfoliation [Not Recovered/Not Resolved]
  - Lacrimation increased [Not Recovered/Not Resolved]

NARRATIVE: CASE EVENT DATE: 20191223
